FAERS Safety Report 23674616 (Version 1)
Quarter: 2024Q1

REPORT INFORMATION
  Report Type: Other
  Country: KR (occurrence: None)
  Receive Date: 20240326
  Receipt Date: 20240326
  Transmission Date: 20240410
  Serious: Yes (Death)
  Sender: FDA-Public Use
  Company Number: KR-ROCHE-3530819

PATIENT
  Age: 57 Year
  Sex: Male
  Weight: 87 kg

DRUGS (6)
  1. ATEZOLIZUMAB [Suspect]
     Active Substance: ATEZOLIZUMAB
     Indication: Small cell lung cancer
     Route: 065
  2. ATEZOLIZUMAB [Suspect]
     Active Substance: ATEZOLIZUMAB
     Indication: Dermatomyositis
  3. CARBOPLATIN [Concomitant]
     Active Substance: CARBOPLATIN
     Indication: Small cell lung cancer
  4. CARBOPLATIN [Concomitant]
     Active Substance: CARBOPLATIN
     Indication: Dermatomyositis
  5. ETOPOSIDE [Concomitant]
     Active Substance: ETOPOSIDE
     Indication: Small cell lung cancer
  6. ETOPOSIDE [Concomitant]
     Active Substance: ETOPOSIDE
     Indication: Dermatomyositis

REACTIONS (4)
  - Sepsis [Fatal]
  - Immune system disorder [Fatal]
  - Infection [Fatal]
  - Skin exfoliation [Fatal]
